FAERS Safety Report 13177531 (Version 1)
Quarter: 2017Q1

REPORT INFORMATION
  Report Type: Report from Study
  Country: US (occurrence: US)
  Receive Date: 20170201
  Receipt Date: 20170201
  Transmission Date: 20170428
  Serious: No
  Sender: FDA-Public Use
  Company Number: US-EXELIXIS-CABO-16006451

PATIENT
  Sex: Male

DRUGS (11)
  1. XGEVA [Concomitant]
     Active Substance: DENOSUMAB
  2. COMETRIQ [Suspect]
     Active Substance: CABOZANTINIB S-MALATE
     Dosage: 40 MG, QD, 7 DAYS ON AND 7 DAYS OFF
     Route: 048
     Dates: start: 20160520
  3. ZYTIGA [Concomitant]
     Active Substance: ABIRATERONE ACETATE
  4. COMETRIQ [Suspect]
     Active Substance: CABOZANTINIB S-MALATE
     Indication: PROSTATE CANCER
     Dosage: 60 MG, QD
     Route: 048
     Dates: start: 20160418, end: 201605
  5. FINASTERIDE. [Concomitant]
     Active Substance: FINASTERIDE
  6. PLAVIX [Concomitant]
     Active Substance: CLOPIDOGREL BISULFATE
  7. LEUKINE [Concomitant]
     Active Substance: SARGRAMOSTIM
  8. PREDNISONE. [Concomitant]
     Active Substance: PREDNISONE
  9. COMETRIQ [Suspect]
     Active Substance: CABOZANTINIB S-MALATE
     Dosage: 60 MG, 1 WEEK ON, 1 WEEK OFF
     Route: 048
     Dates: start: 201606, end: 201608
  10. CRESTOR [Concomitant]
     Active Substance: ROSUVASTATIN CALCIUM
  11. LUPRON [Concomitant]
     Active Substance: LEUPROLIDE ACETATE

REACTIONS (11)
  - Throat irritation [Unknown]
  - Burning sensation [Not Recovered/Not Resolved]
  - Stomatitis [Unknown]
  - Haemorrhoids [Unknown]
  - Fatigue [Not Recovered/Not Resolved]
  - Headache [Unknown]
  - Oral discomfort [Recovering/Resolving]
  - Glossodynia [Unknown]
  - Dyspepsia [Unknown]
  - Drug ineffective [Unknown]
  - Off label use [Unknown]
